FAERS Safety Report 18010605 (Version 3)
Quarter: 2022Q2

REPORT INFORMATION
  Report Type: Spontaneous
  Country: AT (occurrence: AT)
  Receive Date: 20200710
  Receipt Date: 20220415
  Transmission Date: 20220721
  Serious: Yes (Other)
  Sender: FDA-Public Use
  Company Number: AT-GILEAD-2020-0481335

PATIENT
  Sex: Male

DRUGS (1)
  1. YESCARTA [Suspect]
     Active Substance: AXICABTAGENE CILOLEUCEL
     Indication: Diffuse large B-cell lymphoma
     Dosage: UNK
     Route: 042
     Dates: start: 20191227, end: 20191227

REACTIONS (11)
  - Disease progression [Recovered/Resolved]
  - Disease progression [Recovered/Resolved]
  - Cytokine release syndrome [Unknown]
  - Atrial fibrillation [Unknown]
  - Drug ineffective [Unknown]
  - Radiotherapy [Recovered/Resolved]
  - Lymphadenopathy [Recovered/Resolved]
  - Lymphadenopathy [Recovered/Resolved]
  - Tachycardia [Unknown]
  - Thrombocytopenia [Unknown]
  - Disease recurrence [Unknown]

NARRATIVE: CASE EVENT DATE: 20190101
